FAERS Safety Report 9285597 (Version 1)
Quarter: 2013Q2

REPORT INFORMATION
  Report Type: Spontaneous
  Country: US (occurrence: None)
  Receive Date: 20130510
  Receipt Date: 20130510
  Transmission Date: 20140414
  Serious: No
  Sender: FDA-Public Use
  Company Number: None

PATIENT
  Sex: Female

DRUGS (2)
  1. EFFEXOR [Suspect]
     Indication: MAJOR DEPRESSION
     Route: 048
     Dates: start: 20120813
  2. EFFEXOR [Suspect]
     Dosage: QHS
     Route: 048
     Dates: start: 20120925

REACTIONS (3)
  - Depression [None]
  - Condition aggravated [None]
  - Product substitution issue [None]
